FAERS Safety Report 7660017-0 (Version None)
Quarter: 2011Q3

REPORT INFORMATION
  Report Type: 
  Country: None (occurrence: None)
  Receive Date: 20110805
  Receipt Date: 20110729
  Transmission Date: 20111222
  Serious: Yes (Other)
  Sender: FDA-Public Use
  Company Number: US-CEPHALON-2011004030

PATIENT
  Age: 54 Year
  Sex: Male

DRUGS (6)
  1. TRAZODONE HCL [Suspect]
     Dates: start: 20110627, end: 20110627
  2. ACTIQ [Suspect]
     Route: 002
     Dates: start: 20110627, end: 20110627
  3. FENTANYL [Suspect]
     Route: 062
     Dates: start: 20110627, end: 20110627
  4. ACETAMINOPHEN [Suspect]
     Dates: start: 20110626, end: 20110627
  5. BENZODIAZEPINE [Suspect]
     Dates: start: 20110627, end: 20110627
  6. SOMA [Suspect]
     Dates: start: 20110627, end: 20110627

REACTIONS (5)
  - SUICIDE ATTEMPT [None]
  - HYPOTENSION [None]
  - OVERDOSE [None]
  - SOMNOLENCE [None]
  - BRADYCARDIA [None]
